FAERS Safety Report 7626562-9 (Version None)
Quarter: 2011Q3

REPORT INFORMATION
  Report Type: 
  Country: None (occurrence: None)
  Receive Date: 20110721
  Receipt Date: 20110630
  Transmission Date: 20111222
  Serious: Yes (Hospitalization)
  Sender: FDA-Public Use
  Company Number: US-GLAXOSMITHKLINE-B0696095A

PATIENT
  Age: 71 Year
  Sex: Female
  Weight: 95.9 kg

DRUGS (6)
  1. GLUCOVANCE [Concomitant]
  2. LIPITOR [Concomitant]
  3. LYRICA [Concomitant]
  4. AVANDIA [Suspect]
     Indication: DIABETES MELLITUS
     Dosage: 4MG PER DAY
     Route: 048
     Dates: start: 20021127, end: 20070801
  5. ALLEGRA [Concomitant]
  6. LOTREL [Concomitant]

REACTIONS (3)
  - MYOCARDIAL INFARCTION [None]
  - CORONARY ARTERY DISEASE [None]
  - ACUTE CORONARY SYNDROME [None]
